FAERS Safety Report 11609740 (Version 1)
Quarter: 2015Q4

REPORT INFORMATION
  Report Type: Spontaneous
  Country: JP (occurrence: JP)
  Receive Date: 20151007
  Receipt Date: 20151007
  Transmission Date: 20160304
  Serious: Yes (Hospitalization)
  Sender: FDA-Public Use
  Company Number: PHJP2015JP015905

PATIENT
  Age: 68 Year
  Sex: Female

DRUGS (2)
  1. AFINITOR [Suspect]
     Active Substance: EVEROLIMUS
     Indication: BREAST CANCER
     Dosage: UNK MG, UNK
     Route: 048
     Dates: start: 201504
  2. AFINITOR [Suspect]
     Active Substance: EVEROLIMUS
     Dosage: 5 MG, UNK
     Route: 048
     Dates: start: 20150731

REACTIONS (4)
  - Wound secretion [Recovering/Resolving]
  - Decubitus ulcer [Unknown]
  - Tumour necrosis [Recovering/Resolving]
  - Metastases to chest wall [Recovering/Resolving]

NARRATIVE: CASE EVENT DATE: 20150904
